FAERS Safety Report 6146861-X (Version None)
Quarter: 2009Q2

REPORT INFORMATION
  Report Type: 
  Country: None (occurrence: None)
  Receive Date: 20090407
  Receipt Date: 20090326
  Transmission Date: 20091009
  Serious: Yes (Other)
  Sender: FDA-Public Use
  Company Number: US-PFIZER INC-2009189367

PATIENT
  Sex: Female
  Weight: 97.506 kg

DRUGS (16)
  1. DILANTIN-125 [Suspect]
     Indication: ELECTROENCEPHALOGRAM ABNORMAL
  2. VALSARTAN [Concomitant]
  3. TENORMIN [Concomitant]
  4. AXID [Concomitant]
  5. PAMELOR [Concomitant]
  6. KLONOPIN [Concomitant]
  7. ALL OTHER THERAPEUTIC PRODUCTS [Concomitant]
  8. DONNATAL [Concomitant]
  9. FIBRE, DIETARY [Concomitant]
  10. MECLIZINE [Concomitant]
  11. SYNTHROID [Concomitant]
  12. ZAROXOLYN [Concomitant]
  13. MICRO-K [Concomitant]
  14. AMILORIDE HYDROCHLORIDE [Concomitant]
  15. MAGNESIUM SULFATE [Concomitant]
  16. ZYRTEC [Concomitant]

REACTIONS (6)
  - BLOOD CHOLESTEROL INCREASED [None]
  - DIABETES MELLITUS [None]
  - FOOD INTOLERANCE [None]
  - INFLUENZA [None]
  - RENAL FAILURE CHRONIC [None]
  - WEIGHT DECREASED [None]
